FAERS Safety Report 18752768 (Version 1)
Quarter: 2021Q1

REPORT INFORMATION
  Report Type: Spontaneous
  Country: CA (occurrence: CA)
  Receive Date: 20210118
  Receipt Date: 20210118
  Transmission Date: 20210419
  Serious: Yes (Other)
  Sender: FDA-Public Use
  Company Number: CA-PURDUE-USA-2020-0197939

PATIENT
  Sex: Female

DRUGS (2)
  1. OXYCONTIN [Suspect]
     Active Substance: OXYCODONE HYDROCHLORIDE
     Indication: PELVIC PAIN
     Dosage: UNKNOWN
     Route: 048
  2. DILAUDID [Suspect]
     Active Substance: HYDROMORPHONE HYDROCHLORIDE
     Indication: PELVIC PAIN
     Dosage: UNKNOWN
     Route: 048

REACTIONS (8)
  - Pain [Unknown]
  - Cardiac murmur [Unknown]
  - Hernia [Unknown]
  - Candida infection [Unknown]
  - Intestinal obstruction [Unknown]
  - Intestinal ulcer [Unknown]
  - Drug dependence [Unknown]
  - Weight decreased [Unknown]
